FAERS Safety Report 16806281 (Version 1)
Quarter: 2019Q3

REPORT INFORMATION
  Report Type: Spontaneous
  Country: US (occurrence: US)
  Receive Date: 20190913
  Receipt Date: 20190913
  Transmission Date: 20191005
  Serious: No
  Sender: FDA-Public Use
  Company Number: US-PERRIGO-18US009052

PATIENT
  Sex: Female

DRUGS (2)
  1. SHAMPOOS [Suspect]
     Active Substance: UNSPECIFIED INGREDIENT
     Indication: ROUTINE HEALTH MAINTENANCE
     Dosage: UNKNOWN, UNKNOWN
     Route: 061
     Dates: start: 201808, end: 201808
  2. MINOXIDIL. [Suspect]
     Active Substance: MINOXIDIL
     Indication: PRODUCT USED FOR UNKNOWN INDICATION
     Dosage: UNKNOWN, UNKNOWN
     Route: 061

REACTIONS (2)
  - Application site exfoliation [Unknown]
  - Application site irritation [Unknown]

NARRATIVE: CASE EVENT DATE: 201808
